FAERS Safety Report 7280399-1 (Version None)
Quarter: 2011Q1

REPORT INFORMATION
  Report Type: 
  Country: None (occurrence: None)
  Receive Date: 20110208
  Receipt Date: 20110127
  Transmission Date: 20110831
  Serious: Yes (Hospitalization, Other)
  Sender: FDA-Public Use
  Company Number: US-ELI_LILLY_AND_COMPANY-US201010007318

PATIENT
  Age: 86 Year
  Sex: Male
  Weight: 71.2 kg

DRUGS (4)
  1. HUMULIN N [Suspect]
     Indication: DIABETES MELLITUS
     Dosage: 30 U, UNKNOWN
  2. ANTIBIOTICS [Concomitant]
  3. GLIMEPIRIDE [Concomitant]
  4. GLIPIZIDE [Concomitant]

REACTIONS (5)
  - ENCEPHALITIS [None]
  - BLOOD GLUCOSE DECREASED [None]
  - BLOOD GLUCOSE INCREASED [None]
  - URINARY TRACT INFECTION [None]
  - DEMENTIA [None]
